FAERS Safety Report 10044211 (Version 1)
Quarter: 2014Q1

REPORT INFORMATION
  Report Type: Spontaneous
  Country: US (occurrence: None)
  Receive Date: 20140327
  Receipt Date: 20140327
  Transmission Date: 20141002
  Serious: Yes (Hospitalization)
  Sender: FDA-Public Use
  Company Number: None

PATIENT
  Age: 67 Year
  Sex: Male
  Weight: 100.5 kg

DRUGS (1)
  1. DIVALPROEX [Suspect]
     Indication: BIPOLAR I DISORDER
     Dosage: MG  PO?~03/23/2006 THRU ~12/20/2013
     Route: 048
     Dates: start: 20060323, end: 20131220

REACTIONS (1)
  - Transaminases increased [None]
